FAERS Safety Report 10073527 (Version 1)
Quarter: 2014Q2

REPORT INFORMATION
  Report Type: Spontaneous
  Country: BE (occurrence: AE)
  Receive Date: 20140411
  Receipt Date: 20140411
  Transmission Date: 20141212
  Serious: Yes (Hospitalization)
  Sender: FDA-Public Use
  Company Number: BE-009507513-1404SAU003955

PATIENT
  Age: 29 Year
  Sex: Female
  Weight: 69 kg

DRUGS (6)
  1. ORGALUTRAN [Suspect]
     Indication: INFERTILITY FEMALE
     Dosage: ADMINISTERED FROM DAY 5  OF  STIMULATION
  2. ORGALUTRAN [Suspect]
     Indication: OVULATION INDUCTION
  3. FOLLITROPIN BETA [Suspect]
     Indication: INFERTILITY FEMALE
     Dosage: STARTED ON DAY 2 OF THE MENSTRUAL CYCLE FOR 9 DAYS
  4. FOLLITROPIN BETA [Suspect]
     Indication: OVULATION INDUCTION
  5. TRIPTORELIN [Concomitant]
  6. CABERGOLINE [Concomitant]
     Dosage: UNK, QD

REACTIONS (2)
  - Abscess drainage [Recovered/Resolved]
  - Ovarian hyperstimulation syndrome [Unknown]
